FAERS Safety Report 12947109 (Version 1)
Quarter: 2016Q4

REPORT INFORMATION
  Report Type: Spontaneous
  Country: US (occurrence: US)
  Receive Date: 20161116
  Receipt Date: 20161116
  Transmission Date: 20170207
  Serious: Yes (Life-Threatening, Disabling)
  Sender: FDA-Public Use
  Company Number: None

PATIENT
  Age: 31 Year
  Sex: Female
  Weight: 63.56 kg

DRUGS (2)
  1. TORADOL [Suspect]
     Active Substance: KETOROLAC TROMETHAMINE
     Indication: NECK PAIN
     Dosage: SINGLE DOSE
     Route: 030
     Dates: start: 20160608, end: 20160608
  2. VITAMIN B COMPLEX [Concomitant]
     Active Substance: CYANOCOBALAMIN\DEXPANTHENOL\NIACINAMIDE\PYRIDOXINE HYDROCHLORIDE\RIBOFLAVIN 5^-PHOSPHATE SODIUM\THIAMINE HYDROCHLORIDE\VITAMIN B COMPLEX

REACTIONS (9)
  - Weight decreased [None]
  - Thirst [None]
  - Asthenia [None]
  - Decreased appetite [None]
  - Muscle spasms [None]
  - Retching [None]
  - Kidney infection [None]
  - Influenza like illness [None]
  - Nausea [None]

NARRATIVE: CASE EVENT DATE: 20160806
